FAERS Safety Report 23951623 (Version 1)
Quarter: 2024Q2

REPORT INFORMATION
  Report Type: Spontaneous
  Country: CN (occurrence: None)
  Receive Date: 20240607
  Receipt Date: 20240607
  Transmission Date: 20240715
  Serious: Yes (Other)
  Sender: FDA-Public Use
  Company Number: 2024A130074

PATIENT
  Age: 27134 Day
  Sex: Male

DRUGS (3)
  1. DAPAGLIFLOZIN [Suspect]
     Active Substance: DAPAGLIFLOZIN
     Indication: Aortic stenosis
     Route: 048
     Dates: start: 20240418, end: 20240424
  2. ATORVASTATIN CALCIUM [Suspect]
     Active Substance: ATORVASTATIN CALCIUM
     Indication: Aortic stenosis
     Route: 048
     Dates: start: 20240418, end: 20240424
  3. EZETIMIBE [Suspect]
     Active Substance: EZETIMIBE
     Indication: Aortic stenosis
     Route: 048
     Dates: start: 20240418, end: 20240424

REACTIONS (1)
  - Liver injury [Recovering/Resolving]

NARRATIVE: CASE EVENT DATE: 20240424
